FAERS Safety Report 10342548 (Version 2)
Quarter: 2015Q1

REPORT INFORMATION
  Report Type: Report from Study
  Country: JP (occurrence: JP)
  Receive Date: 20140725
  Receipt Date: 20150312
  Transmission Date: 20150720
  Serious: Yes (Death)
  Sender: FDA-Public Use
  Company Number: JP-TEVA-497145USA

PATIENT
  Sex: Male
  Weight: 70 kg

DRUGS (7)
  1. DEPAKENE [Concomitant]
     Active Substance: VALPROIC ACID
     Dosage: 400 MILLIGRAM DAILY;
     Route: 048
     Dates: start: 20121010, end: 201405
  2. METALITE [Concomitant]
     Active Substance: TRIENTINE HYDROCHLORIDE
     Indication: HEPATO-LENTICULAR DEGENERATION
     Dosage: 10 CAPSULES/DAY
     Route: 048
     Dates: start: 20121018, end: 201405
  3. VEGETAMIN [Concomitant]
     Active Substance: CHLORPROMAZINE HYDROCHLORIDE\PHENOBARBITAL\PROMETHAZINE HYDROCHLORIDE
     Dosage: 1 DOSAGE FORMS DAILY;
     Route: 048
     Dates: start: 20121010, end: 201405
  4. LANDSEN [Concomitant]
     Active Substance: CLONAZEPAM
     Indication: HEPATO-LENTICULAR DEGENERATION
     Dosage: 1 MILLIGRAM DAILY;
     Route: 048
     Dates: start: 20121016, end: 201405
  5. SEROQUEL [Concomitant]
     Active Substance: QUETIAPINE FUMARATE
     Route: 048
     Dates: start: 20121010, end: 201405
  6. ZINC [Suspect]
     Active Substance: ZINC\ZINC CHLORIDE
     Indication: HEPATO-LENTICULAR DEGENERATION
     Dosage: 150 MILLIGRAM DAILY;
     Route: 048
     Dates: start: 20080819
  7. ZINC [Suspect]
     Active Substance: ZINC\ZINC CHLORIDE
     Dosage: 150 MILLIGRAM DAILY;
     Route: 048
     Dates: start: 20130913, end: 201405

REACTIONS (1)
  - Completed suicide [Fatal]
